FAERS Safety Report 20100388 (Version 1)
Quarter: 2021Q4

REPORT INFORMATION
  Report Type: Spontaneous
  Country: US (occurrence: US)
  Receive Date: 20211123
  Receipt Date: 20211123
  Transmission Date: 20220303
  Serious: No
  Sender: FDA-Public Use
  Company Number: US-LUPIN PHARMACEUTICALS INC.-2021-22697

PATIENT
  Age: 55 Year
  Sex: Female

DRUGS (3)
  1. TRIAMCINOLONE [Suspect]
     Active Substance: TRIAMCINOLONE
     Indication: Dermatitis contact
     Dosage: UNKNOWN, OINTMENT TWICE WEEKLY
     Route: 061
  2. CLOTRIMAZOLE [Suspect]
     Active Substance: CLOTRIMAZOLE
     Indication: Dermatitis contact
     Dosage: UNK
     Route: 065
  3. DROMETRIZOLE TRISILOXANE [Concomitant]
     Indication: Stress urinary incontinence
     Dosage: UNK
     Route: 065

REACTIONS (1)
  - Drug ineffective [Unknown]
